FAERS Safety Report 12216932 (Version 1)
Quarter: 2016Q1

REPORT INFORMATION
  Report Type: Report from Study
  Country: JP (occurrence: JP)
  Receive Date: 20160329
  Receipt Date: 20160329
  Transmission Date: 20160526
  Serious: Yes (Hospitalization)
  Sender: FDA-Public Use
  Company Number: PHHY2014JP179364

PATIENT
  Sex: Male

DRUGS (28)
  1. OFATUMUMAB [Suspect]
     Active Substance: OFATUMUMAB
     Dosage: 2000 MG, QD
     Route: 041
     Dates: start: 20141028, end: 20141028
  2. OFATUMUMAB [Suspect]
     Active Substance: OFATUMUMAB
     Dosage: 2000 MG, QD
     Route: 041
     Dates: start: 20141216, end: 20141216
  3. PREDNISOLONE. [Concomitant]
     Active Substance: PREDNISOLONE
     Indication: PREMEDICATION
     Dosage: 100 MG, QD
     Route: 065
     Dates: start: 20140926, end: 20140926
  4. ACETAMINOPHEN. [Concomitant]
     Active Substance: ACETAMINOPHEN
     Dosage: 400 MG, QD
     Route: 065
     Dates: start: 20141003, end: 20141003
  5. CRAVIT [Concomitant]
     Active Substance: LEVOFLOXACIN
     Indication: INFECTION
     Dosage: UNK
     Route: 065
  6. PREDNISOLONE. [Concomitant]
     Active Substance: PREDNISOLONE
     Dosage: 100 MG, QD
     Route: 065
     Dates: start: 20141021, end: 20141021
  7. ACETAMINOPHEN. [Concomitant]
     Active Substance: ACETAMINOPHEN
     Indication: PREMEDICATION
     Dosage: 400 MG, QD
     Route: 065
     Dates: start: 20140926, end: 20140926
  8. ANTIPRU//HYDROXYZINE HYDROCHLORIDE [Concomitant]
     Dosage: 25 MG, QD
     Route: 065
     Dates: start: 20141003, end: 20141003
  9. CEFTRIAXONE. [Concomitant]
     Active Substance: CEFTRIAXONE
     Indication: INFECTION
     Dosage: 4 G, QD
     Route: 065
  10. OFATUMUMAB [Suspect]
     Active Substance: OFATUMUMAB
     Indication: CHRONIC LYMPHOCYTIC LEUKAEMIA
     Dosage: 300 MG, QD
     Route: 041
     Dates: start: 20140926, end: 20140926
  11. OFATUMUMAB [Suspect]
     Active Substance: OFATUMUMAB
     Dosage: 2000 MG, QD
     Route: 041
     Dates: start: 20141021, end: 20141021
  12. PREDNISOLONE. [Concomitant]
     Active Substance: PREDNISOLONE
     Dosage: 100 MG, QD
     Route: 065
     Dates: start: 20141003, end: 20141003
  13. PREDNISOLONE. [Concomitant]
     Active Substance: PREDNISOLONE
     Dosage: 100 MG, QD
     Route: 065
     Dates: start: 20141028, end: 20141028
  14. PREDNISOLONE. [Concomitant]
     Active Substance: PREDNISOLONE
     Dosage: 100 MG, QD
     Route: 065
     Dates: start: 20141104, end: 20141104
  15. ACETAMINOPHEN. [Concomitant]
     Active Substance: ACETAMINOPHEN
     Dosage: 400 MG, QD
     Route: 065
     Dates: start: 20141021, end: 20141021
  16. ANTIPRU//HYDROXYZINE HYDROCHLORIDE [Concomitant]
     Dosage: 25 MG, QD
     Route: 065
     Dates: start: 20141028, end: 20141028
  17. CLARITHROMYCIN. [Concomitant]
     Active Substance: CLARITHROMYCIN
     Indication: INFECTION PROPHYLAXIS
     Dosage: 200 MG, QD
     Route: 065
  18. ANTIPRU//HYDROXYZINE HYDROCHLORIDE [Concomitant]
     Dosage: 25 MG, QD
     Route: 065
     Dates: start: 20141021, end: 20141021
  19. ANTIPRU//HYDROXYZINE HYDROCHLORIDE [Concomitant]
     Dosage: 25 MG, QD
     Route: 065
     Dates: start: 20141104, end: 20141104
  20. OFATUMUMAB [Suspect]
     Active Substance: OFATUMUMAB
     Dosage: 2000 MG, QD
     Route: 041
     Dates: start: 20141104, end: 20141104
  21. ACETAMINOPHEN. [Concomitant]
     Active Substance: ACETAMINOPHEN
     Dosage: 400 MG, QD
     Route: 065
     Dates: start: 20141104, end: 20141104
  22. PREDNISOLONE. [Concomitant]
     Active Substance: PREDNISOLONE
     Dosage: 100 MG, QD
     Route: 065
     Dates: start: 20141216, end: 20141216
  23. OFATUMUMAB [Suspect]
     Active Substance: OFATUMUMAB
     Dosage: 2000 MG, QD
     Route: 041
     Dates: start: 20141003, end: 20141003
  24. ACETAMINOPHEN. [Concomitant]
     Active Substance: ACETAMINOPHEN
     Dosage: 400 MG, QD
     Route: 065
     Dates: start: 20141028, end: 20141028
  25. ACETAMINOPHEN. [Concomitant]
     Active Substance: ACETAMINOPHEN
     Dosage: 400 MG, QD
     Route: 065
     Dates: start: 20141216, end: 20141216
  26. ANTIPRU//HYDROXYZINE HYDROCHLORIDE [Concomitant]
     Indication: PREMEDICATION
     Dosage: 25 MG, QD
     Route: 065
     Dates: start: 20140926, end: 20140926
  27. ANTIPRU//HYDROXYZINE HYDROCHLORIDE [Concomitant]
     Dosage: 25 MG, QD
     Route: 065
     Dates: start: 20141216, end: 20141216
  28. BAKTAR [Concomitant]
     Active Substance: SULFAMETHOXAZOLE\TRIMETHOPRIM
     Indication: INFECTION
     Dosage: 1 DF, QD
     Route: 065

REACTIONS (8)
  - Pyrexia [Unknown]
  - Bronchitis [Unknown]
  - Pyrexia [Recovered/Resolved]
  - Hypoalbuminaemia [Unknown]
  - Chronic obstructive pulmonary disease [Recovering/Resolving]
  - Anaemia [Unknown]
  - Hyponatraemia [Unknown]
  - Decreased appetite [Unknown]

NARRATIVE: CASE EVENT DATE: 20140927
